FAERS Safety Report 5988701-5 (Version None)
Quarter: 2008Q4

REPORT INFORMATION
  Report Type: 
  Country: None (occurrence: None)
  Receive Date: 20081210
  Receipt Date: 20081201
  Transmission Date: 20090506
  Serious: Yes (Other)
  Sender: FDA-Public Use
  Company Number: PHHY2008BR30635

PATIENT
  Age: 47 Year
  Sex: Female
  Weight: 49 kg

DRUGS (5)
  1. DIOVAN HCT [Suspect]
     Indication: HYPERTENSION
     Dosage: 160/12.5 MG
     Route: 048
     Dates: start: 20080701
  2. DIOVAN HCT [Suspect]
     Dosage: 160/12.5 MG, HALF DF
     Route: 048
     Dates: start: 20081111, end: 20081129
  3. PAROXETINE HCL [Concomitant]
     Indication: DEPRESSION
     Dosage: 20 MG, 1 DF/DAY
     Route: 048
     Dates: start: 20060101
  4. RIVOTRIL [Concomitant]
     Indication: DEPRESSION
     Dosage: 2 MG, 1/2 DF/MORNING
     Route: 048
     Dates: start: 20060101
  5. CARBAMAZEPINE [Concomitant]
     Indication: DEPRESSION
     Dosage: 20 MG, 1/2 DF MORNING AND NIGHT
     Route: 048
     Dates: start: 20060101

REACTIONS (9)
  - AMNESIA [None]
  - BLOOD PRESSURE INCREASED [None]
  - DRUG ADMINISTRATION ERROR [None]
  - ECONOMIC PROBLEM [None]
  - NECK PAIN [None]
  - NERVOUSNESS [None]
  - STRESS [None]
  - TREATMENT NONCOMPLIANCE [None]
  - VISION BLURRED [None]
